FAERS Safety Report 5818543-2 (Version None)
Quarter: 2008Q3

REPORT INFORMATION
  Report Type: 
  Country: None (occurrence: None)
  Receive Date: 20080718
  Receipt Date: 20080709
  Transmission Date: 20090109
  Serious: Yes (Hospitalization)
  Sender: FDA-Public Use
  Company Number: CLOF-1000232

PATIENT
  Age: 60 Year
  Sex: Male
  Weight: 102.8 kg

DRUGS (2)
  1. CLOLAR [Suspect]
     Indication: ACUTE LEUKAEMIA
     Dosage: INTRAVENOUS
     Route: 042
     Dates: start: 20080101, end: 20080101
  2. BUSULFAN (BUSULFAN) [Suspect]
     Indication: ACUTE LEUKAEMIA
     Dosage: INTRAVENOUS
     Route: 042
     Dates: start: 20080101, end: 20080101

REACTIONS (2)
  - DYSPHAGIA [None]
  - OESOPHAGITIS [None]
